FAERS Safety Report 9418095 (Version 3)
Quarter: 2013Q3

REPORT INFORMATION
  Report Type: Report from Study
  Country: JP (occurrence: JP)
  Receive Date: 20130724
  Receipt Date: 20130815
  Transmission Date: 20140515
  Serious: Yes (Hospitalization)
  Sender: FDA-Public Use
  Company Number: JP-ASTRAZENECA-2013SE54880

PATIENT
  Age: 74 Year
  Sex: Female

DRUGS (23)
  1. CRESTOR [Suspect]
     Indication: HYPERCHOLESTEROLAEMIA
     Route: 048
     Dates: start: 20110525, end: 20110912
  2. CRESTOR [Suspect]
     Indication: HYPERCHOLESTEROLAEMIA
     Route: 048
     Dates: start: 20110913
  3. AMARYL [Concomitant]
     Indication: DIABETES MELLITUS
     Route: 065
     Dates: start: 20020419
  4. NESINA [Concomitant]
     Indication: DIABETES MELLITUS
     Route: 065
     Dates: start: 20110525
  5. BLOPRESS [Concomitant]
     Route: 065
     Dates: start: 20070326, end: 20120609
  6. CALBLOCK [Concomitant]
     Indication: HYPERTENSION
     Route: 065
     Dates: start: 20110902, end: 20120423
  7. CALBLOCK [Concomitant]
     Indication: HYPERTENSION
     Route: 065
     Dates: start: 20120424
  8. MICOMBI [Concomitant]
     Indication: HYPERTENSION
     Route: 048
     Dates: start: 20130610
  9. PLETAAL OD [Concomitant]
     Route: 065
     Dates: start: 20100626
  10. BOFUTSUSHOSAN [Concomitant]
     Route: 048
     Dates: start: 20100807
  11. SENNOSIDE [Concomitant]
     Route: 048
     Dates: start: 20110709
  12. ELCATONIN [Concomitant]
     Route: 065
     Dates: start: 20110712
  13. SWORD [Concomitant]
     Route: 065
     Dates: start: 20111007, end: 20111011
  14. SWORD [Concomitant]
     Route: 065
     Dates: start: 20120307, end: 20120311
  15. CIPROXAN [Concomitant]
     Route: 065
     Dates: start: 20121006, end: 20121011
  16. CIPROXAN [Concomitant]
     Route: 065
     Dates: start: 20130301, end: 20130305
  17. SHOSEIRYUTO [Concomitant]
     Route: 048
     Dates: start: 20121024, end: 20121028
  18. LYSOZYME HYDROCHLORIDE [Concomitant]
     Route: 065
     Dates: start: 20121024, end: 20121028
  19. AVELOX [Concomitant]
     Route: 065
     Dates: start: 20121024, end: 20121028
  20. SHAKUYAKUKANZOTO [Concomitant]
     Route: 048
     Dates: start: 20121224
  21. PASTARON [Concomitant]
     Dosage: OPTIMAL DOSE
     Route: 062
     Dates: start: 20130301
  22. NEUZYM [Concomitant]
     Route: 065
     Dates: start: 20130318, end: 20130324
  23. GENINAX [Concomitant]
     Route: 065
     Dates: start: 20130610

REACTIONS (6)
  - Cardiac failure [Recovering/Resolving]
  - Fracture [Recovering/Resolving]
  - Cystitis [Recovered/Resolved]
  - Upper respiratory tract infection [Unknown]
  - Palmoplantar keratoderma [Recovered/Resolved]
  - Muscle spasms [Not Recovered/Not Resolved]
